FAERS Safety Report 15808938 (Version 3)
Quarter: 2019Q1

REPORT INFORMATION
  Report Type: Spontaneous
  Country: US (occurrence: US)
  Receive Date: 20190110
  Receipt Date: 20190226
  Transmission Date: 20190417
  Serious: Yes (Other)
  Sender: FDA-Public Use
  Company Number: PHEH2019US000830

PATIENT
  Sex: Female

DRUGS (1)
  1. CHOLESTYRAMINE FOR ORAL SUSPENSION USP [Suspect]
     Active Substance: CHOLESTYRAMINE
     Indication: DIARRHOEA
     Dosage: 4 G, BID
     Route: 048
     Dates: start: 201812, end: 20190106

REACTIONS (3)
  - Product solubility abnormal [Unknown]
  - Choking [Unknown]
  - Dysphagia [Recovered/Resolved]
